FAERS Safety Report 4293960-3 (Version None)
Quarter: 2004Q1

REPORT INFORMATION
  Report Type: 
  Country: None (occurrence: None)
  Receive Date: 20040211
  Receipt Date: 20040127
  Transmission Date: 20041129
  Serious: Yes (Hospitalization)
  Sender: FDA-Public Use
  Company Number: USA030947095

PATIENT
  Age: 77 Year
  Sex: Female
  Weight: 65 kg

DRUGS (8)
  1. FORTEO [Suspect]
     Indication: OSTEOPOROSIS
     Dosage: 20 UG/DAY
     Dates: start: 20030909, end: 20030909
  2. VALTREX [Concomitant]
  3. FOSAMAX [Concomitant]
  4. CALTRATE (CALCIUM CARBONATE) [Concomitant]
  5. CHLOR-TRIMETON [Concomitant]
  6. NASACORT [Concomitant]
  7. VITAMIN B-12 [Concomitant]
  8. QUIBRON-T - SLOW RELEASE (THEOPHYLLINE) [Concomitant]

REACTIONS (4)
  - BLOOD PRESSURE INCREASED [None]
  - CHEST PAIN [None]
  - DRUG HYPERSENSITIVITY [None]
  - HEART RATE INCREASED [None]
